FAERS Safety Report 10352504 (Version 1)
Quarter: 2014Q3

REPORT INFORMATION
  Report Type: Spontaneous
  Country: US (occurrence: US)
  Receive Date: 20140730
  Receipt Date: 20140730
  Transmission Date: 20150326
  Serious: No
  Sender: FDA-Public Use
  Company Number: US-ABBVIE-13P-163-1182594-00

PATIENT
  Age: 61 Year
  Sex: Female
  Weight: 55.39 kg

DRUGS (4)
  1. SYNTHROID [Suspect]
     Active Substance: LEVOTHYROXINE SODIUM
     Indication: AUTOIMMUNE THYROIDITIS
     Dosage: HALF TABLET
     Dates: start: 201311, end: 20131219
  2. BIOIDENTICAL ESTROGEN AND PROGESTERONE (NON-ABBVIE) [Concomitant]
     Indication: NIGHT SWEATS
  3. SYNTHROID [Suspect]
     Active Substance: LEVOTHYROXINE SODIUM
     Indication: AUTOIMMUNE THYROIDITIS
     Dates: start: 201311, end: 20131219
  4. BIOIDENTICAL ESTROGEN AND PROGESTERONE (NON-ABBVIE) [Concomitant]
     Indication: OSTEOPOROSIS

REACTIONS (2)
  - Headache [Not Recovered/Not Resolved]
  - Psychomotor hyperactivity [Not Recovered/Not Resolved]

NARRATIVE: CASE EVENT DATE: 201311
